FAERS Safety Report 9159282 (Version 1)
Quarter: 2013Q1

REPORT INFORMATION
  Report Type: Spontaneous
  Country: US (occurrence: None)
  Receive Date: 20130312
  Receipt Date: 20130312
  Transmission Date: 20140127
  Serious: Yes (Life-Threatening)
  Sender: FDA-Public Use
  Company Number: None

PATIENT
  Age: 65 Year
  Sex: Male
  Weight: 113.4 kg

DRUGS (1)
  1. NOVOLOG INSULIN PEN [Suspect]
     Indication: DIABETES MELLITUS
     Dosage: FAST ACTING 2X
     Dates: start: 20130104, end: 20130104

REACTIONS (10)
  - Drug dispensing error [None]
  - Fatigue [None]
  - Loss of consciousness [None]
  - Movement disorder [None]
  - Asthenia [None]
  - Malaise [None]
  - Blood glucose decreased [None]
  - Visual impairment [None]
  - Dysphagia [None]
  - Abdominal discomfort [None]
